FAERS Safety Report 4998369-2 (Version None)
Quarter: 2006Q2

REPORT INFORMATION
  Report Type: 
  Country: None (occurrence: None)
  Receive Date: 20060508
  Receipt Date: 20060427
  Transmission Date: 20061013
  Serious: Yes (Hospitalization, Other)
  Sender: FDA-Public Use
  Company Number: 2006047224

PATIENT
  Age: 12 Year
  Sex: Female
  Weight: 58.9676 kg

DRUGS (4)
  1. NEURONTIN [Suspect]
     Indication: ARTHRALGIA
     Dosage: 1200 MG (400 MG, 3 IN 1 D), ORAL
     Route: 048
     Dates: start: 20060101
  2. ZOLOFT [Concomitant]
  3. ADVIL [Concomitant]
  4. TRAZODONE HCL [Concomitant]

REACTIONS (16)
  - ABDOMINAL PAIN [None]
  - ABNORMAL SENSATION IN EYE [None]
  - BALANCE DISORDER [None]
  - CHEST DISCOMFORT [None]
  - CONVERSION DISORDER [None]
  - DIPLOPIA [None]
  - DIZZINESS [None]
  - DRUG WITHDRAWAL CONVULSIONS [None]
  - DRY MOUTH [None]
  - DYSPNOEA [None]
  - FATIGUE [None]
  - HEART RATE INCREASED [None]
  - HOSTILITY [None]
  - NAUSEA [None]
  - POLYMENORRHOEA [None]
  - SYNCOPE [None]
